FAERS Safety Report 19286313 (Version 2)
Quarter: 2021Q2

REPORT INFORMATION
  Report Type: Spontaneous
  Country: US (occurrence: US)
  Receive Date: 20210521
  Receipt Date: 20210627
  Transmission Date: 20210717
  Serious: No
  Sender: FDA-Public Use
  Company Number: US-AMGEN-USASP2021075312

PATIENT
  Age: 86 Year
  Sex: Male

DRUGS (6)
  1. LUPRON [Concomitant]
     Active Substance: LEUPROLIDE ACETATE
  2. COVID?19 VACCINE [Concomitant]
     Indication: PRODUCT USED FOR UNKNOWN INDICATION
     Dosage: UNK
     Route: 065
     Dates: start: 20210219
  3. XTANDI [Suspect]
     Active Substance: ENZALUTAMIDE
     Dosage: UNK
     Route: 048
  4. MIRALAX [Concomitant]
     Active Substance: POLYETHYLENE GLYCOL 3350
  5. XGEVA [Suspect]
     Active Substance: DENOSUMAB
     Indication: PRODUCT USED FOR UNKNOWN INDICATION
     Dosage: 120 MILLIGRAM
     Route: 065
     Dates: start: 20210219
  6. XTANDI [Suspect]
     Active Substance: ENZALUTAMIDE
     Indication: PROSTATE CANCER
     Dosage: 160 MILLIGRAM, QD
     Route: 048
     Dates: start: 20210118

REACTIONS (23)
  - Rash [Unknown]
  - Blood pressure increased [Unknown]
  - Muscular weakness [Unknown]
  - Somnolence [Unknown]
  - Chills [Unknown]
  - Pain in extremity [Recovering/Resolving]
  - Dyspnoea [Unknown]
  - Hot flush [Unknown]
  - Renal pain [Unknown]
  - Eating disorder [Unknown]
  - Eye irritation [Unknown]
  - Abdominal distension [Unknown]
  - Weight increased [Unknown]
  - Back pain [Unknown]
  - Muscle tightness [Unknown]
  - Echocardiogram abnormal [Unknown]
  - Pain in jaw [Unknown]
  - Arthralgia [Unknown]
  - Chest pain [Unknown]
  - Contusion [Unknown]
  - Blood pressure fluctuation [Unknown]
  - Decreased appetite [Unknown]
  - Asthenia [Unknown]

NARRATIVE: CASE EVENT DATE: 2021
